FAERS Safety Report 6003263-4 (Version None)
Quarter: 2008Q4

REPORT INFORMATION
  Report Type: 
  Country: None (occurrence: None)
  Receive Date: 20081212
  Receipt Date: 20081205
  Transmission Date: 20090506
  Serious: Yes (Other)
  Sender: FDA-Public Use
  Company Number: 2008SP024993

PATIENT
  Age: 60 Year
  Sex: Male

DRUGS (3)
  1. PEG-INTRON (PEGINTERFERON ALFA-2B) (PEGINTERFERON ALFA-2B) [Suspect]
     Indication: HEPATITIS CHOLESTATIC
     Dosage: 0.5 MCG/KG; QW; SC
     Route: 058
     Dates: start: 20070501, end: 20080401
  2. REBETOL [Suspect]
     Indication: HEPATITIS CHOLESTATIC
     Dosage: 200 MG; QD; PO
     Route: 048
     Dates: start: 20070501, end: 20080401
  3. PEGASYS [Suspect]
     Indication: HEPATITIS CHOLESTATIC
     Dosage: SC
     Route: 058

REACTIONS (4)
  - AUTOIMMUNE HEPATITIS [None]
  - CHOLESTASIS [None]
  - HEPATIC FIBROSIS [None]
  - HEPATIC FUNCTION ABNORMAL [None]
